FAERS Safety Report 15314841 (Version 1)
Quarter: 2018Q3

REPORT INFORMATION
  Report Type: Spontaneous
  Country: US (occurrence: US)
  Receive Date: 20180815
  Receipt Date: 20180815
  Transmission Date: 20181010
  Serious: Yes (Hospitalization)
  Sender: FDA-Public Use
  Company Number: None

PATIENT
  Age: 62 Year
  Sex: Female

DRUGS (1)
  1. ZEJULA [Suspect]
     Active Substance: NIRAPARIB
     Indication: OVARIAN CANCER
     Route: 048
     Dates: start: 20170501

REACTIONS (7)
  - Coagulopathy [None]
  - Vomiting [None]
  - Platelet count decreased [None]
  - Impaired healing [None]
  - Hallucination [None]
  - Nausea [None]
  - Skin haemorrhage [None]
